FAERS Safety Report 22254012 (Version 1)
Quarter: 2023Q2

REPORT INFORMATION
  Report Type: Report from Study
  Country: GB (occurrence: GB)
  Receive Date: 20230426
  Receipt Date: 20230426
  Transmission Date: 20230722
  Serious: Yes (Other)
  Sender: FDA-Public Use
  Company Number: GB-GLAXOSMITHKLINE-GB2023EME022639

PATIENT

DRUGS (1)
  1. NIRAPARIB [Suspect]
     Active Substance: NIRAPARIB
     Indication: Neoplasm malignant
     Dosage: 200 MG

REACTIONS (3)
  - Nephrolithiasis [Unknown]
  - Procedural pain [Unknown]
  - Pain [Unknown]
